FAERS Safety Report 9498528 (Version 1)
Quarter: 2013Q3

REPORT INFORMATION
  Report Type: Spontaneous
  Country: JP (occurrence: JP)
  Receive Date: 20130904
  Receipt Date: 20130904
  Transmission Date: 20140515
  Serious: Yes (Life-Threatening)
  Sender: FDA-Public Use
  Company Number: JP-GLAXOSMITHKLINE-B0919641A

PATIENT
  Age: 95 Year
  Sex: Female
  Weight: 48 kg

DRUGS (6)
  1. VALTREX [Suspect]
     Indication: HERPES ZOSTER
     Dosage: 1000MG THREE TIMES PER DAY
     Route: 048
     Dates: start: 20130731, end: 20130806
  2. METHYCOBAL [Concomitant]
     Route: 048
  3. LOXONIN [Concomitant]
     Route: 048
  4. PHENOL + ZINC OXIDE LINIMENT [Concomitant]
     Route: 061
  5. BLOPRESS [Concomitant]
     Route: 048
  6. MAGLAX [Concomitant]
     Route: 048

REACTIONS (2)
  - Renal impairment [Recovering/Resolving]
  - Altered state of consciousness [Not Recovered/Not Resolved]
